FAERS Safety Report 8025181-2 (Version None)
Quarter: 2012Q1

REPORT INFORMATION
  Report Type: 
  Country: None (occurrence: None)
  Receive Date: 20120105
  Receipt Date: 20120103
  Transmission Date: 20120608
  Serious: Yes (Hospitalization)
  Sender: FDA-Public Use
  Company Number: FR-GLAXOSMITHKLINE-B0657082A

PATIENT
  Age: 2 Year
  Sex: Male
  Weight: 10 kg

DRUGS (11)
  1. OMEPRAZOLE [Concomitant]
     Dosage: 1MGK PER DAY
     Route: 042
     Dates: start: 20100428
  2. GENTAMICIN SULFATE [Suspect]
     Indication: SKIN NECROSIS
     Dosage: 5MGK PER DAY
     Route: 042
     Dates: start: 20100428, end: 20100430
  3. RIFAMYCINE [Concomitant]
     Route: 047
  4. ZOVIRAX [Suspect]
     Indication: SKIN NECROSIS
     Dosage: 500MGM2 PER DAY
     Route: 042
     Dates: start: 20100428, end: 20100501
  5. ORBENIN CAP [Suspect]
     Indication: SKIN NECROSIS
     Dosage: 150MGK PER DAY
     Route: 042
     Dates: start: 20100430, end: 20100505
  6. ACETAMINOPHEN [Concomitant]
     Dosage: 100MG FOUR TIMES PER DAY
     Route: 042
     Dates: start: 20100428
  7. VITAMIN A OINTMENT [Concomitant]
     Route: 047
  8. AUGMENTIN '125' [Suspect]
     Indication: SKIN NECROSIS
     Dosage: 150MGK PER DAY
     Route: 042
     Dates: start: 20100428, end: 20100430
  9. ALBUMIN (HUMAN) [Suspect]
     Indication: PRODUCT USED FOR UNKNOWN INDICATION
     Dosage: 10G PER DAY
     Route: 042
     Dates: start: 20100429, end: 20100501
  10. MIDAZOLAM HCL [Concomitant]
     Route: 042
     Dates: start: 20100428
  11. SUFENTA PRESERVATIVE FREE [Concomitant]
     Route: 042
     Dates: start: 20100428

REACTIONS (4)
  - PYREXIA [None]
  - DRUG RASH WITH EOSINOPHILIA AND SYSTEMIC SYMPTOMS [None]
  - WHITE BLOOD CELL COUNT INCREASED [None]
  - RASH MACULO-PAPULAR [None]
